FAERS Safety Report 16672824 (Version 1)
Quarter: 2019Q3

REPORT INFORMATION
  Report Type: Report from Study
  Country: US (occurrence: US)
  Receive Date: 20190806
  Receipt Date: 20190806
  Transmission Date: 20191004
  Serious: Yes (Life-Threatening, Other)
  Sender: FDA-Public Use
  Company Number: US-RECRO GAINESVILLE LLC-REPH-2019-000156

PATIENT
  Age: 47 Year
  Sex: Female

DRUGS (1)
  1. VERAPAMIL HYDROCHLORIDE SUSTAINED RELEASE [Suspect]
     Active Substance: VERAPAMIL HYDROCHLORIDE
     Dosage: 30, 240 MILLIGRAM TABLETS, ONE TIME DOSE
     Route: 048

REACTIONS (13)
  - Hypopnoea [Recovered/Resolved]
  - Nodal rhythm [Recovered/Resolved]
  - Intentional overdose [Recovered/Resolved]
  - Pneumonia aspiration [Recovered/Resolved]
  - Hypotension [Recovered/Resolved]
  - Acidosis [Recovered/Resolved]
  - Hyperglycaemia [Recovered/Resolved]
  - Bradycardia [Recovered/Resolved]
  - Cyanosis [Recovered/Resolved]
  - Rhythm idioventricular [Recovered/Resolved]
  - Atrioventricular block second degree [Recovered/Resolved]
  - Cerebrovascular accident [Recovered/Resolved]
  - Coma [Recovered/Resolved]
